FAERS Safety Report 6029609-9 (Version None)
Quarter: 2009Q1

REPORT INFORMATION
  Report Type: 
  Country: None (occurrence: None)
  Receive Date: 20090107
  Receipt Date: 20080618
  Transmission Date: 20090719
  Serious: No
  Sender: FDA-Public Use
  Company Number: US-ABBOTT-08P-163-0458155-00

PATIENT
  Sex: Male
  Weight: 99.88 kg

DRUGS (8)
  1. VICODIN ES [Suspect]
     Indication: PAIN
     Dosage: 7.5/750MG
     Route: 048
     Dates: start: 20050901
  2. FENTANYL CITRATE [Suspect]
     Indication: BACK PAIN
     Route: 002
     Dates: start: 20050720, end: 20050912
  3. FENTANYL CITRATE [Suspect]
     Indication: ARTHRALGIA
     Route: 002
     Dates: start: 20050913, end: 20060125
  4. FENTANYL CITRATE [Suspect]
     Route: 002
     Dates: start: 20060126
  5. FENTANYL-100 [Suspect]
     Indication: PAIN
     Route: 062
     Dates: start: 20051003, end: 20051223
  6. ULTRACET [Suspect]
     Indication: PAIN
     Dosage: 37.5/325MG
     Route: 048
     Dates: start: 20050629
  7. TYLOX [Suspect]
     Indication: PAIN
     Dosage: 5/325MG
     Route: 048
     Dates: start: 20050629
  8. PROPACET 100 [Suspect]
     Indication: PAIN
     Dosage: 100/650MG
     Route: 048
     Dates: start: 20050909

REACTIONS (4)
  - DENTAL CARIES [None]
  - DRUG ABUSE [None]
  - DRUG DEPENDENCE [None]
  - TOOTHACHE [None]
